FAERS Safety Report 15889730 (Version 2)
Quarter: 2019Q1

REPORT INFORMATION
  Report Type: Report from Study
  Country: None (occurrence: GB)
  Receive Date: 20190130
  Receipt Date: 20190204
  Transmission Date: 20190417
  Serious: Yes (Hospitalization, Other)
  Sender: FDA-Public Use
  Company Number: GB-ABBVIE-19K-167-2643033-00

PATIENT
  Age: 64 Year
  Sex: Female
  Weight: 92.4 kg

DRUGS (2)
  1. MIRTAZAPINE. [Concomitant]
     Active Substance: MIRTAZAPINE
     Indication: PRODUCT USED FOR UNKNOWN INDICATION
     Dates: start: 20170301
  2. HUMIRA [Suspect]
     Active Substance: ADALIMUMAB
     Indication: PSORIASIS
     Route: 058
     Dates: start: 20160810

REACTIONS (5)
  - Hypertrophy [Recovered/Resolved]
  - Infarction [Recovered/Resolved]
  - Arthralgia [Recovered/Resolved]
  - Diabetes mellitus [Unknown]
  - Diabetic complication [Recovered/Resolved]

NARRATIVE: CASE EVENT DATE: 20180608
